FAERS Safety Report 13416009 (Version 1)
Quarter: 2017Q2

REPORT INFORMATION
  Report Type: Spontaneous
  Country: DE (occurrence: DE)
  Receive Date: 20170407
  Receipt Date: 20170407
  Transmission Date: 20170830
  Serious: Yes (Other)
  Sender: FDA-Public Use
  Company Number: DE-TEVA-756335GER

PATIENT
  Age: 81 Year
  Sex: Female

DRUGS (6)
  1. GABAPENTIN. [Suspect]
     Active Substance: GABAPENTIN
     Indication: PAIN
     Dosage: 400 MILLIGRAM DAILY;
     Route: 048
     Dates: start: 20160715, end: 20160830
  2. MIRTAZAPIN [Concomitant]
     Active Substance: MIRTAZAPINE
     Indication: DEPRESSION
     Dosage: 30 MILLIGRAM DAILY;
     Route: 048
     Dates: start: 201506
  3. GABAPENTIN. [Suspect]
     Active Substance: GABAPENTIN
     Indication: RESTLESSNESS
     Dosage: 200 MILLIGRAM DAILY;
     Route: 048
     Dates: start: 20160831, end: 20160904
  4. RISPERIDON [Concomitant]
     Active Substance: RISPERIDONE
     Indication: DEPRESSION
     Dosage: 1 MILLIGRAM DAILY;
     Route: 048
     Dates: start: 201506
  5. GABAPENTIN. [Suspect]
     Active Substance: GABAPENTIN
     Dosage: 100 MILLIGRAM DAILY;
     Route: 048
     Dates: start: 20160905, end: 20160920
  6. TIANEPTIN [Concomitant]
     Indication: DEPRESSION
     Dosage: 25 MILLIGRAM DAILY;
     Route: 048
     Dates: start: 201506

REACTIONS (3)
  - Hypokinesia [Recovered/Resolved]
  - Dysarthria [Recovered/Resolved]
  - Fatigue [Recovered/Resolved]

NARRATIVE: CASE EVENT DATE: 201608
